FAERS Safety Report 7080576-9 (Version None)
Quarter: 2010Q4

REPORT INFORMATION
  Report Type: 
  Country: None (occurrence: None)
  Receive Date: 20101103
  Receipt Date: 20101021
  Transmission Date: 20110411
  Serious: Yes (Hospitalization, Other)
  Sender: FDA-Public Use
  Company Number: US-ELI_LILLY_AND_COMPANY-US201007006076

PATIENT
  Sex: Female
  Weight: 46.712 kg

DRUGS (9)
  1. FORTEO [Suspect]
     Indication: OSTEOPOROSIS
     Dosage: 20 UG, DAILY (1/D)
     Route: 058
     Dates: start: 20091208
  2. MELOXICAM [Concomitant]
     Indication: PAIN
  3. AMLODIPINE BESYLATE AND BENAZEPRIL HYDROCHLORIDE [Concomitant]
     Indication: BLOOD PRESSURE
     Dosage: 5-20 MG
  4. GEMFIBROZIL [Concomitant]
     Indication: BLOOD CHOLESTEROL
  5. PRESERVISION LUTEIN EYE VITA.+MIN.SUP.SOFTG. [Concomitant]
  6. OMEPRAZOLE [Concomitant]
     Indication: DYSPEPSIA
  7. RESTORIL [Concomitant]
     Indication: SLEEP DISORDER
     Dosage: UNK, AS NEEDED
  8. FLAXSEED OIL [Concomitant]
     Indication: MACULAR DEGENERATION
  9. TAMOXIFEN CITRATE [Concomitant]
     Indication: BREAST CANCER

REACTIONS (3)
  - FALL [None]
  - NASOPHARYNGITIS [None]
  - WRIST FRACTURE [None]
